FAERS Safety Report 7422719-0 (Version None)
Quarter: 2011Q2

REPORT INFORMATION
  Report Type: 
  Country: None (occurrence: None)
  Receive Date: 20110419
  Receipt Date: 20110405
  Transmission Date: 20111010
  Serious: Yes (Hospitalization, Other)
  Sender: FDA-Public Use
  Company Number: US-JNJFOC-20110404818

PATIENT
  Sex: Male
  Weight: 106.6 kg

DRUGS (4)
  1. ASPIRIN [Concomitant]
     Indication: ISCHAEMIC HEART DISEASE PROPHYLAXIS
     Route: 048
  2. FISH OIL [Concomitant]
     Indication: BLOOD CHOLESTEROL DECREASED
     Route: 048
  3. RISPERDAL CONSTA [Suspect]
     Indication: SCHIZOPHRENIA
     Route: 030
  4. HALDOL [Concomitant]
     Indication: SCHIZOPHRENIA
     Route: 065

REACTIONS (13)
  - WEIGHT INCREASED [None]
  - DYSPNOEA [None]
  - BURNING SENSATION [None]
  - BLOOD TEST ABNORMAL [None]
  - GASTROOESOPHAGEAL REFLUX DISEASE [None]
  - HALLUCINATION, VISUAL [None]
  - PANIC DISORDER [None]
  - HALLUCINATION, AUDITORY [None]
  - HOSPITALISATION [None]
  - ANXIETY [None]
  - BLOOD GLUCOSE DECREASED [None]
  - ANGINA PECTORIS [None]
  - HALLUCINATION, TACTILE [None]
